FAERS Safety Report 21836355 (Version 3)
Quarter: 2023Q1

REPORT INFORMATION
  Report Type: Spontaneous
  Country: US (occurrence: US)
  Receive Date: 20230109
  Receipt Date: 20230329
  Transmission Date: 20230418
  Serious: Yes (Life-Threatening, Hospitalization, Other)
  Sender: FDA-Public Use
  Company Number: US-SANOFI-01432484

PATIENT
  Age: 68 Year
  Sex: Female

DRUGS (2)
  1. DUPIXENT [Suspect]
     Active Substance: DUPILUMAB
     Indication: Asthma
     Dosage: UNK
  2. DUPIXENT [Suspect]
     Active Substance: DUPILUMAB
     Indication: Chronic rhinosinusitis with nasal polyps

REACTIONS (12)
  - Cerebrovascular accident [Recovering/Resolving]
  - Motor dysfunction [Recovering/Resolving]
  - Sensory processing disorder [Recovering/Resolving]
  - Chills [Recovering/Resolving]
  - Asthenia [Not Recovered/Not Resolved]
  - Red blood cell sedimentation rate abnormal [Recovering/Resolving]
  - White blood cell analysis abnormal [Recovering/Resolving]
  - Eosinophil count abnormal [Recovering/Resolving]
  - C-reactive protein abnormal [Recovering/Resolving]
  - Myalgia [Not Recovered/Not Resolved]
  - Arthralgia [Not Recovered/Not Resolved]
  - Drug hypersensitivity [Unknown]
